FAERS Safety Report 12432953 (Version 1)
Quarter: 2016Q2

REPORT INFORMATION
  Report Type: Report from Study
  Country: US (occurrence: US)
  Receive Date: 20160603
  Receipt Date: 20160603
  Transmission Date: 20160815
  Serious: Yes (Hospitalization)
  Sender: FDA-Public Use
  Company Number: US-ABBVIE-16K-163-1638135-00

PATIENT
  Age: 61 Year
  Sex: Female

DRUGS (7)
  1. HUMIRA [Suspect]
     Active Substance: ADALIMUMAB
     Dosage: FOUR WEEKS AFTER 160 MG DOSE
     Route: 058
     Dates: start: 2015, end: 201605
  2. HUMIRA [Suspect]
     Active Substance: ADALIMUMAB
     Indication: CROHN^S DISEASE
     Dosage: LOADING DOSE
     Route: 058
     Dates: start: 2015, end: 2015
  3. VITAMIN D [Concomitant]
     Active Substance: CHOLECALCIFEROL
     Indication: PRODUCT USED FOR UNKNOWN INDICATION
  4. VITAMIN B12 [Concomitant]
     Active Substance: CYANOCOBALAMIN
     Indication: PRODUCT USED FOR UNKNOWN INDICATION
  5. VITAMIN B6 [Concomitant]
     Active Substance: PYRIDOXINE HYDROCHLORIDE
     Indication: PRODUCT USED FOR UNKNOWN INDICATION
  6. HUMIRA [Suspect]
     Active Substance: ADALIMUMAB
     Dosage: LOADING DOSE, TWO WEEKS AFTER 160 MG DOSE
     Route: 058
     Dates: start: 2015, end: 2015
  7. PENTASA [Concomitant]
     Active Substance: MESALAMINE
     Indication: CROHN^S DISEASE

REACTIONS (6)
  - Crohn^s disease [Recovering/Resolving]
  - Intestinal stenosis [Recovering/Resolving]
  - Oxygen saturation decreased [Recovering/Resolving]
  - Asthma [Recovering/Resolving]
  - Intestinal obstruction [Recovering/Resolving]
  - Blood pressure increased [Recovered/Resolved]

NARRATIVE: CASE EVENT DATE: 201605
